FAERS Safety Report 14204478 (Version 1)
Quarter: 2017Q4

REPORT INFORMATION
  Report Type: Spontaneous
  Country: US (occurrence: US)
  Receive Date: 20171120
  Receipt Date: 20171120
  Transmission Date: 20180321
  Serious: Yes (Other)
  Sender: FDA-Public Use
  Company Number: US-MYLANLABS-2017M1070797

PATIENT
  Sex: Female
  Weight: 53 kg

DRUGS (1)
  1. CLOMIPRAMINE [Suspect]
     Active Substance: CLOMIPRAMINE
     Indication: OBSESSIVE-COMPULSIVE DISORDER
     Dosage: 1 DF, UNK
     Route: 048

REACTIONS (2)
  - Constipation [Not Recovered/Not Resolved]
  - Blindness [Not Recovered/Not Resolved]
